FAERS Safety Report 21808485 (Version 1)
Quarter: 2023Q1

REPORT INFORMATION
  Report Type: Report from Study
  Country: US (occurrence: US)
  Receive Date: 20230103
  Receipt Date: 20230103
  Transmission Date: 20230418
  Serious: No
  Sender: FDA-Public Use
  Company Number: US-ABBVIE-4212293

PATIENT
  Sex: Male

DRUGS (3)
  1. SKYRIZI [Suspect]
     Active Substance: RISANKIZUMAB-RZAA
     Indication: Psoriasis
     Dosage: FORM STRENGTH: 150 MG AT WEEK 4, AND EVERY 12 INE EEKS
     Route: 058
     Dates: start: 202202
  2. OMEGA-3 FATTY ACIDS [Concomitant]
     Active Substance: OMEGA-3 FATTY ACIDS
     Indication: Product used for unknown indication
     Route: 065
  3. PFIZER COVID-19 VACCINE 30 MCG [Concomitant]
     Indication: COVID-19 immunisation
     Dosage: 30 MCG
     Route: 030

REACTIONS (3)
  - Therapeutic response shortened [Unknown]
  - Pruritus [Unknown]
  - Skin plaque [Unknown]
